FAERS Safety Report 4655082-9 (Version None)
Quarter: 2005Q2

REPORT INFORMATION
  Report Type: 
  Country: None (occurrence: None)
  Receive Date: 20050503
  Receipt Date: 20050426
  Transmission Date: 20051028
  Serious: Yes (Death)
  Sender: FDA-Public Use
  Company Number: 2005UW06541

PATIENT
  Sex: Male

DRUGS (2)
  1. CRESTOR [Suspect]
  2. DIOVAN [Concomitant]

REACTIONS (1)
  - ANEURYSM [None]
